FAERS Safety Report 7142268-7 (Version None)
Quarter: 2010Q4

REPORT INFORMATION
  Report Type: 
  Country: None (occurrence: None)
  Receive Date: 20101112
  Receipt Date: 20100806
  Transmission Date: 20110411
  Serious: No
  Sender: FDA-Public Use
  Company Number: 1000015532

PATIENT
  Age: 65 Year
  Sex: Female

DRUGS (12)
  1. SAVELLA [Suspect]
     Indication: ANXIETY
     Dosage: 12.5 MG (12.5 MG, 1 IN 1 D) ORAL; 25 MG (12.5 MG, 2 IN 1 D) ORAL
     Route: 048
     Dates: start: 20100607, end: 20100620
  2. SAVELLA [Suspect]
     Indication: DEPRESSION
     Dosage: 12.5 MG (12.5 MG, 1 IN 1 D) ORAL; 25 MG (12.5 MG, 2 IN 1 D) ORAL
     Route: 048
     Dates: start: 20100607, end: 20100620
  3. SAVELLA [Suspect]
     Indication: ANXIETY
     Dosage: 12.5 MG (12.5 MG, 1 IN 1 D) ORAL; 25 MG (12.5 MG, 2 IN 1 D) ORAL
     Route: 048
     Dates: start: 20100621, end: 20100708
  4. SAVELLA [Suspect]
     Indication: DEPRESSION
     Dosage: 12.5 MG (12.5 MG, 1 IN 1 D) ORAL; 25 MG (12.5 MG, 2 IN 1 D) ORAL
     Route: 048
     Dates: start: 20100621, end: 20100708
  5. SAVELLA [Suspect]
     Indication: ANXIETY
     Dosage: 12.5 MG AM; 25 MG PM, ORAL; 25 MG 912.5 MG, 2 IN 1 D) ORAL
     Route: 048
     Dates: start: 20100709, end: 20100731
  6. SAVELLA [Suspect]
     Indication: DEPRESSION
     Dosage: 12.5 MG AM; 25 MG PM, ORAL; 25 MG 912.5 MG, 2 IN 1 D) ORAL
     Route: 048
     Dates: start: 20100709, end: 20100731
  7. SAVELLA [Suspect]
     Indication: ANXIETY
     Dosage: 12.5 MG AM; 25 MG PM, ORAL; 25 MG 912.5 MG, 2 IN 1 D) ORAL
     Route: 048
     Dates: start: 20100801
  8. SAVELLA [Suspect]
     Indication: DEPRESSION
     Dosage: 12.5 MG AM; 25 MG PM, ORAL; 25 MG 912.5 MG, 2 IN 1 D) ORAL
     Route: 048
     Dates: start: 20100801
  9. ACIPHEX [Concomitant]
  10. LORAZEPAM [Concomitant]
  11. DICYCLOMINE [Concomitant]
  12. ENJUVIA [Concomitant]

REACTIONS (5)
  - ABDOMINAL PAIN UPPER [None]
  - ASTHENIA [None]
  - DISTURBANCE IN ATTENTION [None]
  - MEMORY IMPAIRMENT [None]
  - TREMOR [None]
